FAERS Safety Report 22201223 (Version 2)
Quarter: 2023Q2

REPORT INFORMATION
  Report Type: Report from Study
  Country: US (occurrence: US)
  Receive Date: 20230412
  Receipt Date: 20230509
  Transmission Date: 20230722
  Serious: Yes (Hospitalization, Other)
  Sender: FDA-Public Use
  Company Number: US-ABBVIE-4724767

PATIENT
  Age: 48 Year
  Sex: Male

DRUGS (1)
  1. SKYRIZI [Suspect]
     Active Substance: RISANKIZUMAB-RZAA
     Indication: Psoriasis
     Route: 058
     Dates: start: 20230329, end: 20230329

REACTIONS (3)
  - Anaphylactic reaction [Recovered/Resolved]
  - Allergic oedema [Unknown]
  - Erythema [Unknown]

NARRATIVE: CASE EVENT DATE: 20230330
